FAERS Safety Report 25817810 (Version 1)
Quarter: 2025Q3

REPORT INFORMATION
  Report Type: Spontaneous
  Country: US (occurrence: None)
  Receive Date: 20250918
  Receipt Date: 20250918
  Transmission Date: 20251021
  Serious: Yes (Hospitalization)
  Sender: FDA-CTU
  Company Number: None

PATIENT
  Age: 48 Year
  Sex: Female
  Weight: 61 kg

DRUGS (2)
  1. XELODA [Suspect]
     Active Substance: CAPECITABINE
     Dates: end: 20250805
  2. ELOXATIN [Suspect]
     Active Substance: OXALIPLATIN
     Dates: end: 20250724

REACTIONS (2)
  - Vaginal infection [None]
  - Pneumonia [None]

NARRATIVE: CASE EVENT DATE: 20250902
